FAERS Safety Report 4621830-7 (Version None)
Quarter: 2005Q1

REPORT INFORMATION
  Report Type: 
  Country: None (occurrence: None)
  Receive Date: 20050329
  Receipt Date: 20050304
  Transmission Date: 20050727
  Serious: Yes (Other)
  Sender: FDA-Public Use
  Company Number: 200511747US

PATIENT
  Age: 31 Year
  Sex: Male
  Weight: 65.5 kg

DRUGS (9)
  1. LOVENOX [Suspect]
     Indication: DRUG INTERACTION
     Route: 058
  2. ANALGESICS [Concomitant]
     Dosage: DOSE: UNK
  3. COUMADIN [Concomitant]
     Route: 048
  4. DILANTIN [Concomitant]
     Route: 048
  5. OXYCODONE [Concomitant]
     Dosage: DOSE: UNK
  6. XANAX [Concomitant]
     Route: 048
  7. SOMA [Concomitant]
     Dosage: FREQUENCY: IRREGULAR
     Route: 048
  8. LORCET-HD [Concomitant]
     Dosage: DOSE: 10/650
     Route: 048
  9. ROXICODONE [Concomitant]
     Route: 048

REACTIONS (8)
  - ARTHRALGIA [None]
  - BACK PAIN [None]
  - CHILLS [None]
  - HEPATITIS B [None]
  - JAUNDICE [None]
  - NAUSEA [None]
  - OCULAR ICTERUS [None]
  - PYREXIA [None]
